FAERS Safety Report 5253034-1 (Version None)
Quarter: 2007Q1

REPORT INFORMATION
  Report Type: 
  Country: None (occurrence: None)
  Receive Date: 20070227
  Receipt Date: 20070213
  Transmission Date: 20070707
  Serious: Yes (Congenital Anomaly, Other)
  Sender: FDA-Public Use
  Company Number: GXKR2007GB01661

PATIENT
  Sex: Female
  Weight: 3.1 kg

DRUGS (4)
  1. DOXYCYCLINE [Suspect]
     Dosage: UNK, UNK, TRANSPLACENTAL
     Route: 064
  2. ERYTHROMYCIN [Concomitant]
  3. SALBUTAMOL (SALBUTAMOL) [Concomitant]
  4. SERETIDE (FLUTICASONE PROPIONATE, SALMETEROL XINAFOATE) [Concomitant]

REACTIONS (4)
  - ANKYLOGLOSSIA CONGENITAL [None]
  - APGAR SCORE LOW [None]
  - CAESAREAN SECTION [None]
  - DRUG EXPOSURE DURING PREGNANCY [None]
